FAERS Safety Report 19841161 (Version 2)
Quarter: 2021Q3

REPORT INFORMATION
  Report Type: Report from Study
  Country: US (occurrence: US)
  Receive Date: 20210915
  Receipt Date: 20210930
  Transmission Date: 20211014
  Serious: No
  Sender: FDA-Public Use
  Company Number: NVSC2021US209276

PATIENT
  Sex: Female

DRUGS (1)
  1. ENTRESTO [Suspect]
     Active Substance: SACUBITRIL\VALSARTAN
     Indication: CARDIAC FAILURE
     Dosage: 1 DF, BID,(24/26MG)
     Route: 048
     Dates: start: 20200301

REACTIONS (3)
  - Hypersensitivity [Unknown]
  - Peripheral swelling [Unknown]
  - Weight increased [Not Recovered/Not Resolved]
